FAERS Safety Report 7907381-2 (Version None)
Quarter: 2011Q4

REPORT INFORMATION
  Report Type: 
  Country: None (occurrence: None)
  Receive Date: 20111109
  Receipt Date: 20111109
  Transmission Date: 20120403
  Serious: No
  Sender: FDA-Public Use
  Company Number: None

PATIENT
  Age: 63 Year
  Sex: Male
  Weight: 88.6 kg

DRUGS (1)
  1. HEPARIN SODIUM [Suspect]
     Indication: ANTICOAGULANT THERAPY
     Dosage: 6000 + 1500UNITS X 1 DOSE @ IV 2000 UNITS X 1 DOSE IV
     Route: 042
     Dates: start: 20111028

REACTIONS (1)
  - DRUG INEFFECTIVE [None]
